FAERS Safety Report 8242951-6 (Version None)
Quarter: 2012Q1

REPORT INFORMATION
  Report Type: 
  Country: None (occurrence: None)
  Receive Date: 20120329
  Receipt Date: 20120329
  Transmission Date: 20120608
  Serious: Yes (Other)
  Sender: FDA-Public Use
  Company Number: None

PATIENT
  Sex: Female
  Weight: 83.461 kg

DRUGS (1)
  1. VIGAMOX [Suspect]
     Indication: CORNEAL OPERATION
     Dosage: 2 DROPS
     Route: 031
     Dates: start: 20120131, end: 20120205

REACTIONS (13)
  - SINUS DISORDER [None]
  - PARANASAL SINUS HYPERSECRETION [None]
  - EAR DISORDER [None]
  - AURICULAR SWELLING [None]
  - SINUS HEADACHE [None]
  - THROAT IRRITATION [None]
  - RHINORRHOEA [None]
  - INFLAMMATION [None]
  - DYSPHONIA [None]
  - RESPIRATORY DISORDER [None]
  - BURNING SENSATION [None]
  - PHARYNGEAL OEDEMA [None]
  - DYSPHAGIA [None]
